FAERS Safety Report 9737995 (Version 1)
Quarter: 2013Q4

REPORT INFORMATION
  Report Type: Spontaneous
  Country: US (occurrence: US)
  Receive Date: 20131208
  Receipt Date: 20131208
  Transmission Date: 20140711
  Serious: No
  Sender: FDA-Public Use
  Company Number: -SAAVPROD-RENA-1002036

PATIENT
  Age: 77 Year
  Sex: Female

DRUGS (1)
  1. SEVELAMER CARBONATE [Suspect]
     Indication: HYPERPHOSPHATAEMIA
     Dosage: 10.4 G, QD (3 TABLETS WITH MEAL AND 2 TABLETS WITH SNACKS)
     Route: 065
     Dates: start: 20130603, end: 20130812

REACTIONS (1)
  - Abdominal discomfort [Unknown]
